FAERS Safety Report 6870010-3 (Version None)
Quarter: 2010Q3

REPORT INFORMATION
  Report Type: 
  Country: None (occurrence: None)
  Receive Date: 20100722
  Receipt Date: 20100709
  Transmission Date: 20110219
  Serious: Yes (Hospitalization, Other)
  Sender: FDA-Public Use
  Company Number: US-PFIZER INC-2010086765

PATIENT
  Sex: Female
  Weight: 83.9 kg

DRUGS (9)
  1. LYRICA [Suspect]
     Indication: FIBROMYALGIA
     Dosage: 150 MG, 3X/DAY
     Route: 048
     Dates: end: 20100703
  2. LYRICA [Interacting]
     Indication: PSORIATIC ARTHROPATHY
  3. METHADONE [Interacting]
     Dosage: UNK
  4. PERCOCET [Concomitant]
     Dosage: UNK
  5. ZOLOFT [Concomitant]
     Dosage: UNK
  6. VERAPAMIL [Concomitant]
     Indication: BLOOD PRESSURE INCREASED
     Dosage: UNK
  7. LOTENSIN [Concomitant]
     Indication: BLOOD PRESSURE INCREASED
     Dosage: UNK
  8. AMBIEN [Concomitant]
     Indication: SLEEP DISORDER
     Dosage: UNK
  9. TRAZODONE [Concomitant]
     Indication: SLEEP DISORDER
     Dosage: UNK

REACTIONS (8)
  - COORDINATION ABNORMAL [None]
  - DRUG INTERACTION [None]
  - GRAND MAL CONVULSION [None]
  - POST PROCEDURAL COMPLICATION [None]
  - POST PROCEDURAL INFECTION [None]
  - PSORIATIC ARTHROPATHY [None]
  - SOMNOLENCE [None]
  - WEIGHT DECREASED [None]
